FAERS Safety Report 6960769-9 (Version None)
Quarter: 2010Q3

REPORT INFORMATION
  Report Type: 
  Country: None (occurrence: None)
  Receive Date: 20100901
  Receipt Date: 20100825
  Transmission Date: 20110219
  Serious: Yes (Hospitalization, Other)
  Sender: FDA-Public Use
  Company Number: DE-ROCHE-719946

PATIENT
  Sex: Male
  Weight: 86 kg

DRUGS (5)
  1. TOCILIZUMAB [Suspect]
     Indication: RHEUMATOID ARTHRITIS
     Dosage: SINGLE DOSES ON 11 MAY, 9 JUNE AND 7 JULY
     Route: 042
     Dates: start: 20100511, end: 20100707
  2. METHOTREXATE [Concomitant]
     Route: 048
  3. IBUPROFEN [Concomitant]
     Route: 048
  4. LODOTRA [Concomitant]
     Route: 048
  5. OMEPRAZOLE [Concomitant]
     Route: 048

REACTIONS (2)
  - BRONCHITIS [None]
  - PLEURAL EFFUSION [None]
